FAERS Safety Report 9886389 (Version 2)
Quarter: 2014Q2

REPORT INFORMATION
  Report Type: Spontaneous
  Country: IT (occurrence: IT)
  Receive Date: 20140210
  Receipt Date: 20140623
  Transmission Date: 20141212
  Serious: Yes (Other)
  Sender: FDA-Public Use
  Company Number: IT-PFIZER INC-2014036252

PATIENT
  Age: 74 Year
  Sex: Male

DRUGS (3)
  1. CORDARONE [Suspect]
     Indication: ATRIAL FIBRILLATION
     Dosage: UNK
     Route: 048
     Dates: start: 20130101, end: 20131222
  2. LOPRESSOR [Interacting]
     Indication: ATRIAL FIBRILLATION
     Dosage: UNK
     Route: 048
     Dates: start: 20130101, end: 20131222
  3. ALCOHOL [Interacting]
     Dosage: UNK
     Route: 065

REACTIONS (4)
  - Alcohol interaction [Recovered/Resolved]
  - Atrial fibrillation [Recovered/Resolved]
  - Gait disturbance [Recovered/Resolved]
  - Heart rate decreased [Recovered/Resolved]
